FAERS Safety Report 25840028 (Version 4)
Quarter: 2025Q4

REPORT INFORMATION
  Report Type: Spontaneous
  Country: JP (occurrence: JP)
  Receive Date: 20250924
  Receipt Date: 20251211
  Transmission Date: 20260117
  Serious: Yes (Death, Hospitalization, Other)
  Sender: BRISTOL-MYERS SQUIBB COMPANY
  Company Number: JP-TAIHO-2025-009959

PATIENT
  Age: 78 Year
  Sex: Female
  Weight: 34 kg

DRUGS (4)
  1. ABRAXANE [Suspect]
     Active Substance: PACLITAXEL
     Indication: Pancreatic carcinoma metastatic
     Dosage: ON DAYS 1, 8, AND 15 OF EACH 28-DAY CYCLE; CYCLE 1; POSTPONED ON DAY 8
     Route: 041
     Dates: start: 20240213, end: 20240213
  2. ABRAXANE [Suspect]
     Active Substance: PACLITAXEL
     Dosage: CYCLE 1 DAY 15
     Route: 041
     Dates: start: 20240227, end: 20240227
  3. GEMCITABINE HYDROCHLORIDE [Suspect]
     Active Substance: GEMCITABINE HYDROCHLORIDE
     Indication: Pancreatic carcinoma metastatic
     Dosage: ON DAYS 1, 8, AND 15 OF EACH 28-DAY CYCLE; CYCLE 1; POSTPONED ON DAY 8
     Route: 041
     Dates: start: 20240213, end: 20240213
  4. GEMCITABINE HYDROCHLORIDE [Suspect]
     Active Substance: GEMCITABINE HYDROCHLORIDE
     Dosage: CYCLE 1 DAY 15
     Route: 041
     Dates: start: 20240227, end: 20240227

REACTIONS (2)
  - Clostridium colitis [Fatal]
  - Myelosuppression [Recovered/Resolved]

NARRATIVE: CASE EVENT DATE: 20240215
